FAERS Safety Report 12266662 (Version 1)
Quarter: 2016Q2

REPORT INFORMATION
  Report Type: Spontaneous
  Country: US (occurrence: US)
  Receive Date: 20160414
  Receipt Date: 20160414
  Transmission Date: 20160815
  Serious: No
  Sender: FDA-Public Use
  Company Number: US-TEVA-597543USA

PATIENT
  Sex: Female

DRUGS (1)
  1. GABAPENTIN. [Suspect]
     Active Substance: GABAPENTIN
     Dosage: 3600 MILLIGRAM DAILY;
     Dates: start: 201301

REACTIONS (2)
  - Dysphagia [Unknown]
  - Product physical issue [Unknown]
